FAERS Safety Report 18903215 (Version 2)
Quarter: 2021Q1

REPORT INFORMATION
  Report Type: Spontaneous
  Country: US (occurrence: US)
  Receive Date: 20210217
  Receipt Date: 20210305
  Transmission Date: 20210420
  Serious: Yes (Death)
  Sender: FDA-Public Use
  Company Number: US-009507513-2102USA004195

PATIENT
  Age: 55 Year
  Sex: Male

DRUGS (1)
  1. ZOLINZA [Suspect]
     Active Substance: VORINOSTAT
     Indication: CUTANEOUS T-CELL LYMPHOMA STAGE IV
     Route: 048

REACTIONS (1)
  - Drug ineffective [Fatal]
